FAERS Safety Report 16641523 (Version 1)
Quarter: 2019Q3

REPORT INFORMATION
  Report Type: Report from Study
  Country: DE (occurrence: DE)
  Receive Date: 20190729
  Receipt Date: 20190729
  Transmission Date: 20191004
  Serious: Yes (Congenital Anomaly, Other)
  Sender: FDA-Public Use
  Company Number: DE-GLAXOSMITHKLINE-DE2019GSK134538

PATIENT

DRUGS (3)
  1. PARACETAMOL [Suspect]
     Active Substance: ACETAMINOPHEN
     Indication: ACUTE MYELOID LEUKAEMIA
     Dosage: UNK
     Route: 064
  2. METAMIZOLE [Suspect]
     Active Substance: METAMIZOLE
     Indication: ACUTE MYELOID LEUKAEMIA
     Dosage: UNK
     Route: 064
  3. DICLOFENAC [Suspect]
     Active Substance: DICLOFENAC
     Indication: ACUTE MYELOID LEUKAEMIA
     Dosage: UNK
     Route: 064

REACTIONS (3)
  - Foetal exposure during pregnancy [Unknown]
  - Patent ductus arteriosus [Unknown]
  - Premature baby [Unknown]
